FAERS Safety Report 13105151 (Version 4)
Quarter: 2017Q1

REPORT INFORMATION
  Report Type: Spontaneous
  Country: TR (occurrence: TR)
  Receive Date: 20170111
  Receipt Date: 20170203
  Transmission Date: 20170428
  Serious: Yes (Other)
  Sender: FDA-Public Use
  Company Number: TR-PFIZER INC-2017006818

PATIENT
  Age: 56 Year
  Sex: Female

DRUGS (9)
  1. SALAZOPYRIN [Suspect]
     Active Substance: SULFASALAZINE
     Dosage: 500 MG, 2X/DAY (ONE TABLET IN THE MORNING, ONE TABLET IN THE EVENING)
     Dates: start: 20160527, end: 20160602
  2. SALAZOPYRIN [Suspect]
     Active Substance: SULFASALAZINE
     Indication: PSORIATIC ARTHROPATHY
     Dosage: 500 MG, 1X/DAY (ONE TABLET IN THE EVENING)
     Dates: start: 20160520, end: 20160526
  3. SALAZOPYRIN [Suspect]
     Active Substance: SULFASALAZINE
     Dosage: 500 MG, 3X/DAY (ONE TABLET IN THE MORNING, 2 TABLET IN THE EVENING)
     Dates: start: 20160603, end: 20160609
  4. OSTEOCARE [Concomitant]
     Active Substance: CALCIUM\CHOLECALCIFEROL\MAGNESIUM\ZINC
     Dosage: UNK UNK, 2X/DAY (1 TABLET IN THE MORNING 1 TABLET IN THE EVENING)
  5. DORSILON /00117201/ [Concomitant]
     Dosage: UNK
  6. SALAZOPYRIN [Suspect]
     Active Substance: SULFASALAZINE
     Dosage: 500 MG, 3X/DAY
     Dates: start: 20161220, end: 20170102
  7. SALAZOPYRIN [Suspect]
     Active Substance: SULFASALAZINE
     Dosage: 500 MG, 2X/DAY
     Dates: start: 20161212, end: 20161219
  8. SALAZOPYRIN [Suspect]
     Active Substance: SULFASALAZINE
     Dosage: 500 MG, 4X/DAY (2 TABLETS IN THE MORNING, 2 TABLETS IN THE EVENING)
     Dates: start: 20160610, end: 20161016
  9. MINOSET [Concomitant]
     Active Substance: ACETAMINOPHEN
     Dosage: UNK

REACTIONS (15)
  - Oral discomfort [Recovered/Resolved]
  - Rash [Recovered/Resolved]
  - White blood cell count decreased [Recovered/Resolved]
  - Tongue ulceration [Recovered/Resolved]
  - Lip ulceration [Recovered/Resolved]
  - Product use issue [Unknown]
  - Uveitis [Recovered/Resolved]
  - Eye infection [Recovered/Resolved]
  - Dysgeusia [Not Recovered/Not Resolved]
  - Dry eye [Recovered/Resolved]
  - Myalgia [Recovered/Resolved]
  - Erythema [Recovered/Resolved]
  - Diarrhoea [Recovered/Resolved]
  - Mouth ulceration [Recovered/Resolved]
  - Condition aggravated [Not Recovered/Not Resolved]

NARRATIVE: CASE EVENT DATE: 20160520
